FAERS Safety Report 7639565-5 (Version None)
Quarter: 2011Q3

REPORT INFORMATION
  Report Type: 
  Country: None (occurrence: None)
  Receive Date: 20110722
  Receipt Date: 20110712
  Transmission Date: 20111222
  Serious: Yes (Life-Threatening, Hospitalization)
  Sender: FDA-Public Use
  Company Number: 957540

PATIENT
  Age: 68 Year
  Sex: Female
  Weight: 56 kg

DRUGS (2)
  1. XELODA [Suspect]
     Indication: COLORECTAL CANCER
     Dosage: 1 G GRAM(S), 2 WEEK, ORAL
     Route: 048
     Dates: start: 20110204
  2. OXALIPLATIN [Suspect]
     Indication: COLORECTAL CANCER
     Dosage: 130 MG/KG MILLIGRAM(S)/KILOGRAM, (3 WEEK), INTRAVENOUS (NOT OTHERWISE SPECIFIED)
     Route: 042
     Dates: start: 20110204

REACTIONS (3)
  - DEHYDRATION [None]
  - COLITIS [None]
  - ORGAN FAILURE [None]
